FAERS Safety Report 7179036-6 (Version None)
Quarter: 2010Q4

REPORT INFORMATION
  Report Type: 
  Country: None (occurrence: None)
  Receive Date: 20101221
  Receipt Date: 20101208
  Transmission Date: 20110411
  Serious: Yes (Hospitalization, Other)
  Sender: FDA-Public Use
  Company Number: US-ELI_LILLY_AND_COMPANY-US201012002991

PATIENT
  Age: 50 Year
  Sex: Female

DRUGS (3)
  1. STRATTERA [Suspect]
     Indication: ATTENTION DEFICIT/HYPERACTIVITY DISORDER
     Dosage: 40 MG, DAILY (1/D)
  2. STRATTERA [Suspect]
     Dosage: 80 MG, DAILY (1/D)
  3. EFFEXOR [Concomitant]

REACTIONS (8)
  - ANXIETY [None]
  - ARTERIOSCLEROSIS [None]
  - ATRIOVENTRICULAR BLOCK [None]
  - CARDIAC ENZYMES INCREASED [None]
  - COELIAC DISEASE [None]
  - DEPRESSION [None]
  - HYSTERECTOMY [None]
  - MYOCARDIAL INFARCTION [None]
